FAERS Safety Report 15889495 (Version 2)
Quarter: 2019Q1

REPORT INFORMATION
  Report Type: Report from Study
  Country: US (occurrence: US)
  Receive Date: 20190130
  Receipt Date: 20190301
  Transmission Date: 20190417
  Serious: Yes (Death)
  Sender: FDA-Public Use
  Company Number: US-TAIHO ONCOLOGY  INC-EU-2018-02446

PATIENT
  Age: 49 Year
  Sex: Male

DRUGS (14)
  1. OMEPRAZOLE. [Concomitant]
     Active Substance: OMEPRAZOLE
     Dosage: NI
  2. DOK [Concomitant]
     Active Substance: DOCUSATE SODIUM
     Dosage: NI
  3. XARELTO [Concomitant]
     Active Substance: RIVAROXABAN
     Dosage: NI
  4. FENTANYL. [Concomitant]
     Active Substance: FENTANYL
     Dosage: NI
  5. TADALAFIL. [Concomitant]
     Active Substance: TADALAFIL
     Dosage: NI
  6. OXYCONTIN [Concomitant]
     Active Substance: OXYCODONE HYDROCHLORIDE
     Dosage: NI
  7. HYDROCO/APAP [Concomitant]
     Active Substance: ACETAMINOPHEN\HYDROCODONE
     Dosage: NI
  8. CIALIS [Concomitant]
     Active Substance: TADALAFIL
     Dosage: NI
  9. HYDROMORPHONE [Concomitant]
     Active Substance: HYDROMORPHONE
     Dosage: NI
  10. METHYLPRED [Concomitant]
     Active Substance: METHYLPREDNISOLONE
     Dosage: NI
  11. ESCITALOPRAM [Concomitant]
     Active Substance: ESCITALOPRAM OXALATE
     Dosage: NI
  12. PROCHLORPER [Concomitant]
     Dosage: NI
  13. PROCTOZONE [Concomitant]
     Active Substance: HYDROCORTISONE
     Dosage: NI
  14. LONSURF [Suspect]
     Active Substance: TIPIRACIL HYDROCHLORIDE\TRIFLURIDINE
     Indication: COLON CANCER
     Dosage: CURRENT CYCLE UNKNOWN?5 TABLETS
     Route: 048
     Dates: start: 20181121

REACTIONS (7)
  - Dysuria [Not Recovered/Not Resolved]
  - Dizziness [Not Recovered/Not Resolved]
  - Fatigue [Not Recovered/Not Resolved]
  - Nausea [Not Recovered/Not Resolved]
  - Vomiting [Not Recovered/Not Resolved]
  - Disease progression [Fatal]
  - Confusional state [Not Recovered/Not Resolved]

NARRATIVE: CASE EVENT DATE: 201811
